FAERS Safety Report 5554158-1 (Version None)
Quarter: 2007Q4

REPORT INFORMATION
  Report Type: 
  Country: None (occurrence: None)
  Receive Date: 20071213
  Receipt Date: 20070722
  Transmission Date: 20080405
  Serious: No
  Sender: FDA-Public Use
  Company Number: US-AMGEN-KDL235289

PATIENT
  Sex: Female

DRUGS (5)
  1. ENBREL [Suspect]
     Route: 058
  2. SYNTHROID [Concomitant]
  3. METHOTREXATE [Concomitant]
  4. FOSAMAX [Concomitant]
  5. SURMONTIL [Concomitant]

REACTIONS (1)
  - DERMATITIS CONTACT [None]
